FAERS Safety Report 4276739-8 (Version None)
Quarter: 2004Q1

REPORT INFORMATION
  Report Type: 
  Country: None (occurrence: None)
  Receive Date: 20040120
  Receipt Date: 20040107
  Transmission Date: 20041129
  Serious: Yes (Other)
  Sender: FDA-Public Use
  Company Number: JP-JNJFOC-20040100763

PATIENT
  Sex: Female

DRUGS (1)
  1. LEVOFLOXACIN [Suspect]
     Indication: VIRAL INFECTION
     Dosage: 500 MG ORAL
     Route: 048

REACTIONS (2)
  - AGEUSIA [None]
  - ANOSMIA [None]
